FAERS Safety Report 5384920-X (Version None)
Quarter: 2007Q3

REPORT INFORMATION
  Report Type: 
  Country: None (occurrence: None)
  Receive Date: 20070709
  Receipt Date: 20070622
  Transmission Date: 20080115
  Serious: Yes (Other)
  Sender: FDA-Public Use
  Company Number: 2007RL000188

PATIENT
  Age: 64 Year
  Sex: Female

DRUGS (9)
  1. OMACOR [Suspect]
     Indication: BLOOD CHOLESTEROL INCREASED
     Dosage: SEE IMAGE
     Dates: start: 20070101, end: 20070101
  2. OMACOR [Suspect]
     Indication: BLOOD CHOLESTEROL INCREASED
     Dosage: SEE IMAGE
     Dates: start: 20070101, end: 20070101
  3. OMACOR [Suspect]
     Indication: BLOOD CHOLESTEROL INCREASED
     Dosage: SEE IMAGE
     Dates: start: 20070307, end: 20070301
  4. OMACOR [Suspect]
     Indication: BLOOD CHOLESTEROL INCREASED
     Dosage: SEE IMAGE
     Dates: start: 20070401, end: 20070419
  5. XOPENEX [Concomitant]
  6. ADVAIR DISKUS 100/50 [Concomitant]
  7. OMEPRAZOLE [Concomitant]
  8. LORATADINE [Concomitant]
  9. ALBUTEROL [Concomitant]

REACTIONS (9)
  - DRUG HYPERSENSITIVITY [None]
  - FEELING ABNORMAL [None]
  - FLANK PAIN [None]
  - MYALGIA [None]
  - PAIN [None]
  - PAIN IN EXTREMITY [None]
  - PRURITUS [None]
  - RASH [None]
  - REACTION TO DRUG EXCIPIENTS [None]
